FAERS Safety Report 5307674-1 (Version None)
Quarter: 2007Q2

REPORT INFORMATION
  Report Type: 
  Country: None (occurrence: None)
  Receive Date: 20070419
  Receipt Date: 20070404
  Transmission Date: 20071010
  Serious: Yes (Hospitalization)
  Sender: FDA-Public Use
  Company Number: 154842ISR

PATIENT
  Age: 62 Year
  Sex: Male

DRUGS (5)
  1. TRAMADOL HCL [Suspect]
     Dosage: 150 MG ??
  2. FENTANYL [Suspect]
     Dosage: EVERY 3 DAYS (75 MCG) ??
  3. REMIFENTANIL [Suspect]
     Dosage: (100 MCG)
  4. PIRITRAMIDE [Suspect]
  5. MORPHINE [Suspect]
     Dosage: (2 MG)

REACTIONS (2)
  - ABDOMINAL PAIN UPPER [None]
  - HYPERAESTHESIA [None]
